FAERS Safety Report 11432744 (Version 3)
Quarter: 2015Q4

REPORT INFORMATION
  Report Type: Report from Study
  Country: US (occurrence: US)
  Receive Date: 20150828
  Receipt Date: 20151002
  Transmission Date: 20160304
  Serious: Yes (Hospitalization)
  Sender: FDA-Public Use
  Company Number: US-INCYTE CORPORATION-2015IN003982

PATIENT
  Age: 63 Year
  Sex: Female
  Weight: 81.18 kg

DRUGS (9)
  1. INCB018424 (RUXOLITINIB) + DECITABINE [Suspect]
     Active Substance: DECITABINE\RUXOLITINIB
     Dosage: 20 MG/M2 X 5 DAYS
     Route: 042
     Dates: start: 20150706, end: 20150710
  2. INCB018424 (RUXOLITINIB) + DECITABINE [Suspect]
     Active Substance: DECITABINE\RUXOLITINIB
     Indication: MYELOFIBROSIS
     Dosage: 25 MG, BID
     Route: 048
     Dates: start: 20150629, end: 20150813
  3. VITAMIN B COMPLEX [Concomitant]
     Active Substance: CYANOCOBALAMIN\DEXPANTHENOL\NIACINAMIDE\PYRIDOXINE HYDROCHLORIDE\RIBOFLAVIN 5^-PHOSPHATE SODIUM\THIAMINE HYDROCHLORIDE\VITAMIN B COMPLEX
     Dosage: 1 DF, QD
  4. RIVAROXABAN [Concomitant]
     Active Substance: RIVAROXABAN
     Dosage: 20 MG, QD
  5. INCB018424 (RUXOLITINIB) + DECITABINE [Suspect]
     Active Substance: DECITABINE\RUXOLITINIB
     Dosage: 20 MG/M2 X 5 DAYS
     Route: 042
     Dates: start: 20150803, end: 20150807
  6. AMLODIPINE [Concomitant]
     Active Substance: AMLODIPINE BESYLATE
     Dosage: 7.5 MG, QD
  7. FOLIC ACID. [Concomitant]
     Active Substance: FOLIC ACID
     Dosage: 1 TABLET DAILY
  8. PLAVIX [Concomitant]
     Active Substance: CLOPIDOGREL BISULFATE
     Dosage: 75 MG, QD
  9. ATENOLOL. [Concomitant]
     Active Substance: ATENOLOL
     Dosage: 50 MG, QD

REACTIONS (2)
  - Rectal abscess [Recovered/Resolved]
  - Neutropenia [Recovered/Resolved]

NARRATIVE: CASE EVENT DATE: 20150810
